FAERS Safety Report 19554185 (Version 2)
Quarter: 2021Q3

REPORT INFORMATION
  Report Type: Report from Study
  Country: US (occurrence: US)
  Receive Date: 20210715
  Receipt Date: 20210812
  Transmission Date: 20211014
  Serious: Yes (Hospitalization, Other)
  Sender: FDA-Public Use
  Company Number: US-GILEAD-2021-0540431

PATIENT
  Age: 72 Year
  Sex: Female

DRUGS (15)
  1. AZTREONAM LYSINE [Suspect]
     Active Substance: AZTREONAM LYSINE
     Indication: PSEUDOMONAS INFECTION
     Dosage: 75 MG, TID (EVERY 8 HOURS, CYCLING 28 DAYS ON AND 27 8 DAYS OFF)
     Route: 055
  2. XOPENEX [Concomitant]
     Active Substance: LEVALBUTEROL HYDROCHLORIDE
  3. GAMUNEX?C [Concomitant]
     Active Substance: HUMAN IMMUNOGLOBULIN G
  4. AMITRIPTYLINE HYDROCHLORIDE. [Concomitant]
     Active Substance: AMITRIPTYLINE HYDROCHLORIDE
  5. PROLIA [Concomitant]
     Active Substance: DENOSUMAB
  6. SPIRONOLACTONE. [Concomitant]
     Active Substance: SPIRONOLACTONE
  7. SYMBICORT [Concomitant]
     Active Substance: BUDESONIDE\FORMOTEROL FUMARATE DIHYDRATE
  8. SYNTHROID [Concomitant]
     Active Substance: LEVOTHYROXINE SODIUM
  9. PSYLLIUM [PLANTAGO PSYLLIUM] [Concomitant]
     Active Substance: HERBALS\PLANTAGO INDICA WHOLE
  10. BROVANA [Concomitant]
     Active Substance: ARFORMOTEROL TARTRATE
  11. AZELASTINE HYDROCHLORIDE;FLUTICASONE FUROATE [Concomitant]
     Active Substance: AZELASTINE HYDROCHLORIDE\FLUTICASONE FUROATE
  12. BUDESONIDE. [Concomitant]
     Active Substance: BUDESONIDE
  13. DULERA [Concomitant]
     Active Substance: FORMOTEROL FUMARATE DIHYDRATE\MOMETASONE FUROATE
  14. FASENRA [Concomitant]
     Active Substance: BENRALIZUMAB
  15. OMEPRAZOLE AND SODIUM BICARBONATE [Concomitant]
     Active Substance: OMEPRAZOLE\SODIUM BICARBONATE

REACTIONS (4)
  - Cerebrovascular accident [Not Recovered/Not Resolved]
  - Cerebrovascular accident [Unknown]
  - Off label use [Not Recovered/Not Resolved]
  - Secretion discharge [Unknown]

NARRATIVE: CASE EVENT DATE: 20210712
